FAERS Safety Report 8560561-8 (Version None)
Quarter: 2012Q3

REPORT INFORMATION
  Report Type: 
  Country: None (occurrence: None)
  Receive Date: 20120802
  Receipt Date: 20120727
  Transmission Date: 20120928
  Serious: Yes (Hospitalization, Other)
  Sender: FDA-Public Use
  Company Number: US-ALLERGAN-1206378US

PATIENT
  Age: 38 Year
  Sex: Female

DRUGS (1)
  1. BOTOX COSMETIC [Suspect]
     Indication: SKIN WRINKLING
     Dosage: 25 UNITS, SINGLE
     Route: 030

REACTIONS (7)
  - ASTHENIA [None]
  - CHEST DISCOMFORT [None]
  - PRESYNCOPE [None]
  - NAUSEA [None]
  - TONIC CLONIC MOVEMENTS [None]
  - DIZZINESS [None]
  - INJECTION SITE SWELLING [None]
